FAERS Safety Report 10762582 (Version 1)
Quarter: 2015Q1

REPORT INFORMATION
  Report Type: Spontaneous
  Country: US (occurrence: US)
  Receive Date: 20150204
  Receipt Date: 20150204
  Transmission Date: 20150721
  Serious: No
  Sender: FDA-Public Use
  Company Number: US-PFIZER INC-2015041003

PATIENT
  Age: 58 Year
  Sex: Female
  Weight: 103 kg

DRUGS (1)
  1. GABAPENTIN. [Suspect]
     Active Substance: GABAPENTIN
     Indication: PAIN
     Dosage: 600 MG, 1X/DAY
     Route: 048
     Dates: start: 20141219, end: 201501

REACTIONS (3)
  - Feeling abnormal [Unknown]
  - Sedation [Unknown]
  - Malaise [Unknown]
